FAERS Safety Report 19173127 (Version 1)
Quarter: 2021Q2

REPORT INFORMATION
  Report Type: Report from Study
  Country: JP (occurrence: JP)
  Receive Date: 20210423
  Receipt Date: 20210423
  Transmission Date: 20210717
  Serious: Yes (Other)
  Sender: FDA-Public Use
  Company Number: JP-VIIV HEALTHCARE LIMITED-JP2020JPN060243

PATIENT
  Sex: Male

DRUGS (3)
  1. ABACAVIRSULPHATE+DOLUTEGRAVIR+LAMIVUDINE [Suspect]
     Active Substance: ABACAVIR SULFATE\DOLUTEGRAVIR SODIUM\LAMIVUDINE
     Indication: HIV INFECTION
     Dosage: 1 DF, 1D
     Route: 048
     Dates: start: 20190401
  2. TALION (JAPAN) [Concomitant]
     Active Substance: BEPOTASTINE BESYLATE
     Dosage: UNK
     Dates: start: 20200222, end: 20200521
  3. TALION (JAPAN) [Concomitant]
     Active Substance: BEPOTASTINE BESYLATE
     Dosage: UNK
     Dates: end: 20190510

REACTIONS (5)
  - Keratoconus [Not Recovered/Not Resolved]
  - Keratoconus [Recovering/Resolving]
  - Stomatitis [Recovering/Resolving]
  - Blood triglycerides increased [Not Recovered/Not Resolved]
  - Syphilis [Recovering/Resolving]

NARRATIVE: CASE EVENT DATE: 20190506
